FAERS Safety Report 10541762 (Version 2)
Quarter: 2014Q4

REPORT INFORMATION
  Report Type: Spontaneous
  Country: DE (occurrence: JP)
  Receive Date: 20141024
  Receipt Date: 20141223
  Transmission Date: 20150529
  Serious: No
  Sender: FDA-Public Use
  Company Number: JP-FRI-1000071731

PATIENT
  Age: 90 Year
  Sex: Female

DRUGS (5)
  1. MEMANTINE [Suspect]
     Active Substance: MEMANTINE
     Indication: DEMENTIA ALZHEIMER^S TYPE
     Dosage: 5 MG
     Route: 048
     Dates: start: 20140905, end: 2014
  2. PEROSPIRONE [Concomitant]
     Active Substance: PEROSPIRONE
  3. LORMETAZEPAM [Concomitant]
     Active Substance: LORMETAZEPAM
  4. MEMANTINE [Suspect]
     Active Substance: MEMANTINE
     Indication: DEMENTIA ALZHEIMER^S TYPE
     Dosage: 10 MG
     Route: 048
     Dates: start: 2014, end: 20141002
  5. MEMANTINE [Suspect]
     Active Substance: MEMANTINE
     Dosage: 5 MG IN THE MORNING/10 MG IN THE EVENING
     Route: 048
     Dates: start: 20141003, end: 201410

REACTIONS (2)
  - Somnolence [Recovered/Resolved]
  - Dizziness [Recovered/Resolved]

NARRATIVE: CASE EVENT DATE: 201410
